FAERS Safety Report 19241438 (Version 1)
Quarter: 2021Q2

REPORT INFORMATION
  Report Type: Spontaneous
  Country: US (occurrence: US)
  Receive Date: 20210511
  Receipt Date: 20210511
  Transmission Date: 20210717
  Serious: No
  Sender: FDA-Public Use
  Company Number: US-ORGANON-O2105USA000617

PATIENT
  Sex: Female
  Weight: 67.22 kg

DRUGS (1)
  1. COZAAR [Suspect]
     Active Substance: LOSARTAN POTASSIUM
     Indication: HYPERTENSION
     Dosage: 50 MG ONE TIME DAILY AND 1/2 TO EQUAL 25 MG IN EVENING
     Route: 048

REACTIONS (1)
  - Alopecia [Unknown]
